FAERS Safety Report 13713629 (Version 1)
Quarter: 2017Q3

REPORT INFORMATION
  Report Type: Spontaneous
  Country: GB (occurrence: GB)
  Receive Date: 20170704
  Receipt Date: 20170704
  Transmission Date: 20171127
  Serious: Yes (Hospitalization)
  Sender: FDA-Public Use
  Company Number: GB-ACCORD-053075

PATIENT
  Age: 84 Year
  Sex: Female
  Weight: 58 kg

DRUGS (9)
  1. LANSOPRAZOLE. [Concomitant]
     Active Substance: LANSOPRAZOLE
  2. WARFARIN [Concomitant]
     Active Substance: WARFARIN
  3. LISINOPRIL. [Suspect]
     Active Substance: LISINOPRIL
     Indication: HYPERTENSION
     Dosage: IN THE MORNING
     Route: 048
  4. CETRABEN [Concomitant]
     Active Substance: PARAFFIN
     Dosage: CETRABEN EMOLLIENT CREAM
  5. CITALOPRAM [Concomitant]
     Active Substance: CITALOPRAM HYDROBROMIDE
  6. FYBOGEL [Concomitant]
     Active Substance: PLANTAGO OVATA SEED
  7. ATORVASTATIN [Concomitant]
     Active Substance: ATORVASTATIN
  8. LACTULOSE. [Concomitant]
     Active Substance: LACTULOSE
  9. PARACETAMOL [Concomitant]
     Active Substance: ACETAMINOPHEN

REACTIONS (3)
  - Circulatory collapse [Unknown]
  - Hypotension [Not Recovered/Not Resolved]
  - Syncope [Recovered/Resolved]

NARRATIVE: CASE EVENT DATE: 20170610
